FAERS Safety Report 21811847 (Version 1)
Quarter: 2023Q1

REPORT INFORMATION
  Report Type: Spontaneous
  Country: FR (occurrence: FR)
  Receive Date: 20230103
  Receipt Date: 20230103
  Transmission Date: 20230417
  Serious: Yes (Other)
  Sender: FDA-Public Use
  Company Number: FR-MYLANLABS-2022M1148939

PATIENT
  Sex: Male

DRUGS (2)
  1. TRAMADOL [Suspect]
     Active Substance: TRAMADOL
     Indication: Pain
     Dosage: 50 MILLIGRAM
     Route: 065
     Dates: start: 2020, end: 202209
  2. TRAMADOL [Suspect]
     Active Substance: TRAMADOL
     Indication: Renal colic
     Dosage: UNK
     Route: 065
     Dates: start: 202112, end: 202209

REACTIONS (3)
  - Negative thoughts [Unknown]
  - Morbid thoughts [Unknown]
  - Obsessive-compulsive disorder [Unknown]
